FAERS Safety Report 26135701 (Version 1)
Quarter: 2025Q4

REPORT INFORMATION
  Report Type: Report from Study
  Country: US (occurrence: None)
  Receive Date: 20251209
  Receipt Date: 20251209
  Transmission Date: 20260118
  Serious: Yes (Hospitalization, Other)
  Sender: UCB
  Company Number: US-UCBSA-2025077260

PATIENT
  Age: 79 Year

DRUGS (1)
  1. BRIVARACETAM [Suspect]
     Active Substance: BRIVARACETAM
     Indication: Epilepsy
     Dosage: 100 MG AM 150 MG PM

REACTIONS (7)
  - Fall [Unknown]
  - Radius fracture [Unknown]
  - Ulna fracture [Unknown]
  - Cardiac pacemaker insertion [Unknown]
  - Seizure [Unknown]
  - Product availability issue [Unknown]
  - Therapy interrupted [Unknown]
